FAERS Safety Report 15004445 (Version 3)
Quarter: 2018Q4

REPORT INFORMATION
  Report Type: Spontaneous
  Country: US (occurrence: US)
  Receive Date: 20180613
  Receipt Date: 20181031
  Transmission Date: 20190204
  Serious: No
  Sender: FDA-Public Use
  Company Number: US-PFIZER INC-2018241576

PATIENT
  Age: 59 Year
  Sex: Female

DRUGS (3)
  1. SUMATRIPTAN. [Suspect]
     Active Substance: SUMATRIPTAN
     Dosage: UNK
  2. FENTANYL CITRATE. [Suspect]
     Active Substance: FENTANYL CITRATE
     Dosage: UNK
  3. MORPHINE SULFATE. [Suspect]
     Active Substance: MORPHINE SULFATE
     Dosage: UNK

REACTIONS (1)
  - Drug hypersensitivity [Unknown]
